FAERS Safety Report 4286900-4 (Version None)
Quarter: 2004Q1

REPORT INFORMATION
  Report Type: 
  Country: None (occurrence: None)
  Receive Date: 20040129
  Receipt Date: 20031120
  Transmission Date: 20041129
  Serious: Yes (Death, Life-Threatening, Hospitalization, Other)
  Sender: FDA-Public Use
  Company Number: KII-2003-0006940

PATIENT
  Age: 22 Year
  Sex: Male

DRUGS (3)
  1. OXYCONTIN [Suspect]
  2. AMITRIPTYLINE HCL [Suspect]
  3. DOPAMINE HCL [Concomitant]

REACTIONS (14)
  - ATRIAL FIBRILLATION [None]
  - BLOOD BICARBONATE DECREASED [None]
  - BLOOD PH DECREASED [None]
  - BRAIN DEATH [None]
  - COMA [None]
  - CYANOSIS [None]
  - HEART RATE INCREASED [None]
  - HYPOTENSION [None]
  - MULTIPLE DRUG OVERDOSE [None]
  - MYDRIASIS [None]
  - PO2 DECREASED [None]
  - PULSE ABSENT [None]
  - SINUS TACHYCARDIA [None]
  - SKIN LESION [None]
